FAERS Safety Report 18908260 (Version 3)
Quarter: 2021Q1

REPORT INFORMATION
  Report Type: Other
  Country: MA (occurrence: MA)
  Receive Date: 20210218
  Receipt Date: 20210303
  Transmission Date: 20210420
  Serious: Yes (Hospitalization, Other)
  Sender: FDA-Public Use
  Company Number: MA-ROCHE-2768103

PATIENT
  Age: 58 Year
  Sex: Male

DRUGS (3)
  1. ALTEPLASE. [Suspect]
     Active Substance: ALTEPLASE
     Indication: CEREBROVASCULAR ACCIDENT
     Dosage: INTRAVENOUS TISSUE PLASMINOGEN ACTIVATOR ALTEPLASE (0.9 MG/KG)
     Route: 042
  2. ASPIRIN. [Concomitant]
     Active Substance: ASPIRIN
     Indication: PRODUCT USED FOR UNKNOWN INDICATION
     Route: 065
  3. ATORVASTATIN [Concomitant]
     Active Substance: ATORVASTATIN
     Indication: PRODUCT USED FOR UNKNOWN INDICATION
     Route: 065

REACTIONS (5)
  - Cerebral infarction [Unknown]
  - Seizure [Unknown]
  - Cerebral artery thrombosis [Unknown]
  - Haemorrhagic transformation stroke [Recovering/Resolving]
  - Arteriosclerosis [Unknown]
